FAERS Safety Report 5824218-6 (Version None)
Quarter: 2008Q3

REPORT INFORMATION
  Report Type: 
  Country: None (occurrence: None)
  Receive Date: 20080722
  Receipt Date: 20080707
  Transmission Date: 20090109
  Serious: Yes (Other)
  Sender: FDA-Public Use
  Company Number: 2007AP001531

PATIENT
  Age: 17 Year
  Sex: Male

DRUGS (3)
  1. CITALOPRAM HYDROBROMIDE [Suspect]
     Indication: DEPRESSION
     Dosage: 40 MG; QD;, 20 MG; QD;, 10 MG; QD;
  2. CITALOPRAM HYDROBROMIDE [Suspect]
     Indication: DEPRESSION
     Dosage: 40 MG; QD;, 20 MG; QD;, 10 MG; QD;
  3. CITALOPRAM HYDROBROMIDE [Suspect]
     Indication: DEPRESSION
     Dosage: 40 MG; QD;, 20 MG; QD;, 10 MG; QD;

REACTIONS (3)
  - DRUG INEFFECTIVE [None]
  - HALLUCINATION, OLFACTORY [None]
  - PAROSMIA [None]
